FAERS Safety Report 10247085 (Version 1)
Quarter: 2014Q2

REPORT INFORMATION
  Report Type: Spontaneous
  Country: FR (occurrence: FR)
  Receive Date: 20140619
  Receipt Date: 20140619
  Transmission Date: 20141212
  Serious: Yes (Hospitalization)
  Sender: FDA-Public Use
  Company Number: FR-LUNDBECK-DKLU1101097

PATIENT
  Age: 57 Year
  Sex: Male

DRUGS (4)
  1. URBANYL [Suspect]
     Indication: EPILEPSY
     Route: 048
     Dates: end: 20131003
  2. URBANYL [Suspect]
     Route: 048
     Dates: start: 20131004
  3. KEPPRA [Suspect]
     Indication: EPILEPSY
     Route: 048
     Dates: start: 20130907
  4. TEGRETOL [Concomitant]
     Indication: PRODUCT USED FOR UNKNOWN INDICATION
     Dates: start: 200711

REACTIONS (2)
  - Asthenia [Not Recovered/Not Resolved]
  - Drug ineffective [Unknown]
